FAERS Safety Report 18453123 (Version 12)
Quarter: 2022Q1

REPORT INFORMATION
  Report Type: Spontaneous
  Country: JP (occurrence: JP)
  Receive Date: 20201102
  Receipt Date: 20220227
  Transmission Date: 20220423
  Serious: Yes (Death, Life-Threatening, Hospitalization)
  Sender: FDA-Public Use
  Company Number: JP-JNJFOC-20200916893

PATIENT
  Age: 85 Year
  Sex: Male
  Weight: 51 kg

DRUGS (8)
  1. ERLEADA [Suspect]
     Active Substance: APALUTAMIDE
     Indication: Prostate cancer metastatic
     Dosage: AFTER BREAKFAST
     Route: 048
     Dates: start: 20200703, end: 20200716
  2. ERLEADA [Suspect]
     Active Substance: APALUTAMIDE
     Indication: Prostate cancer metastatic
     Dosage: AFTER BREAKFAST
     Route: 048
     Dates: start: 20200717, end: 20200828
  3. SPIRONOLACTONE [Concomitant]
     Active Substance: SPIRONOLACTONE
     Indication: Cardiac failure chronic
     Route: 048
     Dates: start: 202004, end: 20200909
  4. OMEPRAZOLE [Concomitant]
     Active Substance: OMEPRAZOLE
     Indication: Gastrooesophageal reflux disease
     Route: 048
     Dates: start: 202004, end: 20200914
  5. WARFARIN [Concomitant]
     Active Substance: WARFARIN
     Dosage: DOSE UNKNOWN
     Route: 048
     Dates: start: 202004
  6. AZOSEMIDE [Concomitant]
     Active Substance: AZOSEMIDE
     Dosage: DOSE UNKNOWN
     Route: 048
     Dates: start: 202004
  7. FEBUXOSTAT [Concomitant]
     Active Substance: FEBUXOSTAT
     Dosage: DOSE UNKNOWN
     Route: 048
     Dates: start: 202004
  8. BROTIZOLAM [Concomitant]
     Active Substance: BROTIZOLAM
     Dosage: DOSE UNKNOWN
     Route: 048
     Dates: start: 202004

REACTIONS (4)
  - Toxic epidermal necrolysis [Fatal]
  - Pulmonary tuberculosis [Not Recovered/Not Resolved]
  - Product use in unapproved indication [Unknown]
  - Off label use [Unknown]

NARRATIVE: CASE EVENT DATE: 20200703
